FAERS Safety Report 9591625 (Version 1)
Quarter: 2013Q4

REPORT INFORMATION
  Report Type: Spontaneous
  Country: US (occurrence: US)
  Receive Date: 20131003
  Receipt Date: 20131003
  Transmission Date: 20140711
  Serious: No
  Sender: FDA-Public Use
  Company Number: US-AMGEN-USASP2012081802

PATIENT
  Sex: Female
  Weight: 61.22 kg

DRUGS (10)
  1. ENBREL [Suspect]
     Indication: RHEUMATOID ARTHRITIS
     Dosage: 50 MG, QWK
     Route: 058
  2. RELPAX [Concomitant]
     Dosage: 40 MG, UNK
  3. ZITHROMAX [Concomitant]
     Dosage: 250 MG, UNK
  4. NAPROXEN [Concomitant]
     Dosage: 250 MG, UNK
  5. ASPIRIN [Concomitant]
     Dosage: 325 MG, UNK
  6. VAGIFEM [Concomitant]
     Dosage: 10 MUG, UNK
  7. CALCIUM 600 [Concomitant]
     Dosage: UNK
  8. GLUCOSAMINE [Concomitant]
     Dosage: 1000 MG, UNK
  9. MULTIVITAMIN                       /00097801/ [Concomitant]
     Dosage: UNK
  10. DEPO MEDROL [Concomitant]
     Dosage: 40 MG, UNK

REACTIONS (2)
  - Drug ineffective [Unknown]
  - Bronchitis [Unknown]
